FAERS Safety Report 8601720-5 (Version None)
Quarter: 2012Q3

REPORT INFORMATION
  Report Type: 
  Country: None (occurrence: None)
  Receive Date: 20120817
  Receipt Date: 20120206
  Transmission Date: 20120928
  Serious: No
  Sender: FDA-Public Use
  Company Number: US-BRISTOL-MYERS SQUIBB COMPANY-16385890

PATIENT
  Age: 67 Year
  Sex: Female

DRUGS (4)
  1. SPRYCEL [Suspect]
     Dosage: STOPPED TAKING FOR 2 DAYS AND RESTARTED
     Dates: start: 20111001
  2. LISINOPRIL [Concomitant]
  3. VITAMIN D [Concomitant]
  4. HYDROCHLOROTHIAZIDE [Concomitant]

REACTIONS (4)
  - DIARRHOEA [None]
  - ABDOMINAL PAIN UPPER [None]
  - VOMITING [None]
  - NAUSEA [None]
